FAERS Safety Report 5254072-5 (Version None)
Quarter: 2007Q1

REPORT INFORMATION
  Report Type: 
  Country: None (occurrence: None)
  Receive Date: 20070302
  Receipt Date: 20070223
  Transmission Date: 20070707
  Serious: Yes (Disabling, Other)
  Sender: FDA-Public Use
  Company Number: DE-AVENTIS-200710493DE

PATIENT
  Age: 63 Year
  Sex: Female
  Weight: 61 kg

DRUGS (4)
  1. DOCETAXEL [Suspect]
     Indication: BREAST CANCER
     Route: 042
     Dates: start: 20060724, end: 20060904
  2. GEMCITABINE [Suspect]
     Indication: BREAST CANCER
     Route: 042
     Dates: start: 20060724, end: 20060911
  3. ZOMETA [Suspect]
     Indication: BREAST CANCER
     Route: 042
     Dates: start: 20061018, end: 20070110
  4. CALCIMAGON-D3 [Concomitant]
     Route: 048
     Dates: start: 20061018

REACTIONS (1)
  - LOOSE TOOTH [None]
